FAERS Safety Report 9806594 (Version 4)
Quarter: 2014Q1

REPORT INFORMATION
  Report Type: Spontaneous
  Country: JP (occurrence: JP)
  Receive Date: 20140109
  Receipt Date: 20140130
  Transmission Date: 20141002
  Serious: Yes (Death, Hospitalization)
  Sender: FDA-Public Use
  Company Number: JP-B.I. PHARMACEUTICALS,INC./RIDGEFIELD-2014-BI-01005NB

PATIENT
  Age: 86 Year
  Sex: Female
  Weight: 36.8 kg

DRUGS (14)
  1. PRAZAXA [Suspect]
     Indication: ATRIAL FIBRILLATION
     Dosage: 220 MG
     Route: 048
     Dates: start: 20120625
  2. MICARDIS / TELMISARTAN [Concomitant]
     Indication: HYPERTENSION
     Dosage: 40 MG
     Route: 048
     Dates: start: 20130628
  3. MAGNESIUM OXIDE / MAGNESIUMOXIDE [Concomitant]
     Indication: CONSTIPATION
     Dosage: 1500 MG
     Route: 048
     Dates: start: 20130108
  4. GASCON / DIMETICONE [Concomitant]
     Indication: GASTRITIS
     Dosage: 80 MG
     Route: 048
     Dates: start: 20081125
  5. YOKUKANSAN (YOKUKANSAN) [Concomitant]
     Indication: DEMENTIA ALZHEIMER^S TYPE
     Dosage: 5 G
     Route: 048
     Dates: start: 20090908
  6. PRONON / PROPAFENONE HYDROCHLORIDE [Concomitant]
     Indication: ATRIAL FIBRILLATION
     Dosage: 300 MG
     Route: 048
     Dates: start: 20120625
  7. HALFDIGOXIN / DIGOXIN [Concomitant]
     Indication: ATRIAL FIBRILLATION
     Dosage: 0.0625 MG
     Route: 048
     Dates: start: 20120625
  8. PROMAC / POLAPREZINC [Concomitant]
     Indication: GASTRITIS
     Dosage: 150 MG
     Route: 048
     Dates: start: 20121009
  9. GLUCONSAN K / POTASSIUM GLUCONATE [Concomitant]
     Indication: HYPOKALAEMIA
     Dosage: 2 G
     Route: 048
     Dates: start: 20130709
  10. LUPRAC / TORASEMIDE [Concomitant]
     Indication: HYPERTENSION
     Dosage: 4 MG
     Route: 048
     Dates: start: 20131203
  11. TAKEPRON / LANSOPRAZOLE [Concomitant]
     Dosage: 15 MG
     Route: 048
     Dates: start: 20140104
  12. MEMARY / MEMANTINE HYDROCHLORIDE [Concomitant]
     Dosage: 20 MG
     Route: 048
  13. LANSOPRAZOLE-OD / LANSOPRAZOLE [Concomitant]
     Indication: GASTROOESOPHAGEAL REFLUX DISEASE
     Dosage: 15 MG
     Route: 048
     Dates: start: 20130628
  14. RACOL-NF/ PARENTERAL NUTRITION [Concomitant]
     Indication: DEMENTIA
     Dosage: 200 ML
     Route: 048
     Dates: start: 20130806

REACTIONS (4)
  - Rectal ulcer haemorrhage [Fatal]
  - Rectal haemorrhage [Fatal]
  - Anal haemorrhage [Fatal]
  - Anaemia [Fatal]
